FAERS Safety Report 5274011-0 (Version None)
Quarter: 2007Q1

REPORT INFORMATION
  Report Type: 
  Country: None (occurrence: None)
  Receive Date: 20070323
  Receipt Date: 20070315
  Transmission Date: 20070707
  Serious: Yes (Hospitalization)
  Sender: FDA-Public Use
  Company Number: NO-GLAXOSMITHKLINE-B0463033A

PATIENT
  Sex: Female

DRUGS (1)
  1. IMIGRAN [Suspect]
     Dates: start: 20070313

REACTIONS (3)
  - VAGINAL HAEMATOMA [None]
  - VAGINAL PAIN [None]
  - VAGINAL SWELLING [None]
